FAERS Safety Report 26143902 (Version 1)
Quarter: 2025Q4

REPORT INFORMATION
  Report Type: Spontaneous
  Country: EU (occurrence: EU)
  Receive Date: 20251211
  Receipt Date: 20251211
  Transmission Date: 20260118
  Serious: Yes (Hospitalization)
  Sender: ABBVIE
  Company Number: None

PATIENT
  Age: 76 Year
  Sex: Male
  Weight: 86 kg

DRUGS (1)
  1. BOTOX [Suspect]
     Active Substance: ONABOTULINUMTOXINA
     Indication: Urinary incontinence
     Dosage: TIME INTERVAL: AS NECESSARY: DOSE: 200 INTERNATIONAL UNIT, 200 UNIT?S ALLERGAN, POUDRE POUR SOLUT...
     Route: 030
     Dates: start: 20251007, end: 20251007

REACTIONS (1)
  - Botulism [Recovered/Resolved]

NARRATIVE: CASE EVENT DATE: 20251011
